FAERS Safety Report 12986078 (Version 1)
Quarter: 2016Q4

REPORT INFORMATION
  Report Type: Spontaneous
  Country: US (occurrence: US)
  Receive Date: 20161130
  Receipt Date: 20161130
  Transmission Date: 20170207
  Serious: Yes (Hospitalization, Other)
  Sender: FDA-Public Use
  Company Number: US-ZYDUS-012756

PATIENT
  Age: 81 Year
  Sex: Male

DRUGS (1)
  1. AMIODARONE [Suspect]
     Active Substance: AMIODARONE
     Indication: PRODUCT USED FOR UNKNOWN INDICATION
     Route: 065

REACTIONS (8)
  - Monocytosis [Unknown]
  - Asthenia [Recovering/Resolving]
  - Leukocytosis [Unknown]
  - Drug-induced liver injury [Recovering/Resolving]
  - Failure to thrive [Recovering/Resolving]
  - Hepatitis chronic active [Recovering/Resolving]
  - Weight decreased [Recovering/Resolving]
  - Transaminases increased [Recovering/Resolving]
